FAERS Safety Report 17482645 (Version 1)
Quarter: 2020Q1

REPORT INFORMATION
  Report Type: Spontaneous
  Country: US (occurrence: US)
  Receive Date: 20200218
  Receipt Date: 20200218
  Transmission Date: 20200409
  Serious: Yes (Life-Threatening, Disabling)
  Sender: FDA-Public Use
  Company Number: None

PATIENT
  Age: 70 Year
  Sex: Female
  Weight: 57.61 kg

DRUGS (3)
  1. CHLORESTYRAMINE [Concomitant]
  2. KETOROLAC [Suspect]
     Active Substance: KETOROLAC TROMETHAMINE
     Indication: CATARACT OPERATION
  3. DUREZOL [Suspect]
     Active Substance: DIFLUPREDNATE
     Indication: CATARACT OPERATION
     Dosage: ?          OTHER STRENGTH:0.05% 5 ML;OTHER FREQUENCY:4X^S THEN DOWN TO ;?
     Route: 047
     Dates: start: 20191213, end: 20200124

REACTIONS (2)
  - Headache [None]
  - Hypertension [None]

NARRATIVE: CASE EVENT DATE: 20191224
